FAERS Safety Report 25279238 (Version 1)
Quarter: 2025Q2

REPORT INFORMATION
  Report Type: Report from Study
  Country: PK (occurrence: PK)
  Receive Date: 20250507
  Receipt Date: 20250507
  Transmission Date: 20250716
  Serious: Yes (Other)
  Sender: ROCHE
  Company Number: PK-ROCHE-10000273627

PATIENT
  Age: 62 Year
  Sex: Male

DRUGS (1)
  1. RITUXIMAB [Suspect]
     Active Substance: RITUXIMAB
     Indication: Follicular lymphoma
     Route: 042
     Dates: start: 20250429

REACTIONS (1)
  - Diffuse large B-cell lymphoma [Unknown]

NARRATIVE: CASE EVENT DATE: 20250430
